FAERS Safety Report 9396101 (Version 2)
Quarter: 2013Q3

REPORT INFORMATION
  Report Type: Spontaneous
  Country: DE (occurrence: DE)
  Receive Date: 20130711
  Receipt Date: 20130802
  Transmission Date: 20140515
  Serious: Yes (Hospitalization)
  Sender: FDA-Public Use
  Company Number: DE-B.I. PHARMACEUTICALS,INC./RIDGEFIELD-2013-DE-01801DE

PATIENT
  Age: 71 Year
  Sex: Male
  Weight: 86 kg

DRUGS (2)
  1. PRADAXA [Suspect]
     Indication: ATRIAL FIBRILLATION
     Dosage: 220 MG
     Route: 048
     Dates: start: 201208, end: 20130228
  2. OXYGEN [Concomitant]

REACTIONS (2)
  - Cholangitis [Recovered/Resolved]
  - Liver disorder [Recovered/Resolved]
